FAERS Safety Report 9314338 (Version 2)
Quarter: 2013Q2

REPORT INFORMATION
  Report Type: Spontaneous
  Country: CN (occurrence: CN)
  Receive Date: 20130529
  Receipt Date: 20130611
  Transmission Date: 20140414
  Serious: Yes (Other)
  Sender: FDA-Public Use
  Company Number: CN-COVIDIEN/TYCO HEALTHCARE/MALLINCKRODT-T201302354

PATIENT
  Age: 54 Year
  Sex: Female

DRUGS (1)
  1. OPTIRAY [Suspect]
     Indication: COMPUTERISED TOMOGRAM
     Dosage: 100 ML, SINGLE AT 2.5ML/SEC
     Route: 042
     Dates: start: 20081207, end: 20081207

REACTIONS (4)
  - Dermatitis exfoliative [Recovered/Resolved]
  - Drug eruption [Recovered/Resolved]
  - Injection site pain [Recovered/Resolved]
  - Feeling hot [Recovered/Resolved]
